FAERS Safety Report 7842448-9 (Version None)
Quarter: 2011Q4

REPORT INFORMATION
  Report Type: 
  Country: None (occurrence: None)
  Receive Date: 20111025
  Receipt Date: 20110914
  Transmission Date: 20120403
  Serious: Yes (Hospitalization, Other)
  Sender: FDA-Public Use
  Company Number: PHHY2011TW85955

PATIENT
  Age: 32 Year
  Sex: Female

DRUGS (2)
  1. METHYLERGOMETRINE MALEATE [Suspect]
     Indication: POSTPARTUM HAEMORRHAGE
  2. OXYTOCIN [Suspect]
     Indication: POSTPARTUM HAEMORRHAGE

REACTIONS (1)
  - DRUG INEFFECTIVE [None]
